FAERS Safety Report 20048078 (Version 1)
Quarter: 2021Q4

REPORT INFORMATION
  Report Type: Spontaneous
  Country: US (occurrence: None)
  Receive Date: 20211109
  Receipt Date: 20211109
  Transmission Date: 20220303
  Serious: No
  Sender: FDA-Public Use
  Company Number: 2021A780379

PATIENT
  Age: 861 Month
  Sex: Male
  Weight: 88.9 kg

DRUGS (1)
  1. KOMBIGLYZE XR [Suspect]
     Active Substance: METFORMIN HYDROCHLORIDE\SAXAGLIPTIN HYDROCHLORIDE
     Indication: Type 2 diabetes mellitus
     Dosage: 2.5/1000MG TWICE DAILY
     Route: 048

REACTIONS (5)
  - Abdominal distension [Unknown]
  - Diarrhoea [Unknown]
  - Product residue present [Unknown]
  - Product use issue [Unknown]
  - Product label issue [Unknown]

NARRATIVE: CASE EVENT DATE: 20211001
